FAERS Safety Report 9438638 (Version 1)
Quarter: 2013Q3

REPORT INFORMATION
  Report Type: Spontaneous
  Country: DE (occurrence: DE)
  Receive Date: 20130802
  Receipt Date: 20130802
  Transmission Date: 20140515
  Serious: Yes (Hospitalization, Other)
  Sender: FDA-Public Use
  Company Number: DE-GLAXOSMITHKLINE-D0080642A

PATIENT
  Sex: Male
  Weight: 3.3 kg

DRUGS (2)
  1. PAROXETIN [Suspect]
     Dosage: 60MG PER DAY
     Route: 064
     Dates: start: 20071109, end: 20080810
  2. RIVOTRIL [Suspect]
     Dosage: 2MG PER DAY
     Route: 064
     Dates: start: 20071109, end: 20080810

REACTIONS (10)
  - Drug withdrawal syndrome neonatal [Recovered/Resolved]
  - Hypertonia neonatal [Recovered/Resolved]
  - Myoclonus [Recovered/Resolved]
  - Convulsion neonatal [Recovered/Resolved]
  - Opisthotonus [Recovered/Resolved]
  - Dyspnoea [Recovered/Resolved]
  - Skin discolouration [Recovered/Resolved]
  - Muscle twitching [Recovered/Resolved]
  - Tardive dyskinesia [Recovered/Resolved]
  - Blepharospasm [Recovered/Resolved]
